FAERS Safety Report 9375221 (Version 2)
Quarter: 2013Q3

REPORT INFORMATION
  Report Type: Spontaneous
  Country: US (occurrence: US)
  Receive Date: 20130628
  Receipt Date: 20130730
  Transmission Date: 20140515
  Serious: No
  Sender: FDA-Public Use
  Company Number: US-VERTEX PHARMACEUTICALS INC-2013-007518

PATIENT
  Age: 55 Year
  Sex: Female

DRUGS (3)
  1. INCIVEK [Suspect]
     Indication: HEPATITIS C
     Dosage: 750 MG, IN DIVIDED DOSES
     Route: 048
  2. PEGINTERFERON [Suspect]
     Indication: HEPATITIS C
     Dosage: 180 ?G, QW
     Route: 058
  3. RIBAVIRIN [Suspect]
     Indication: HEPATITIS C
     Dosage: 1200 MG, DAILY IN DIVIDED DOES

REACTIONS (5)
  - Dyspnoea [Unknown]
  - Fatigue [Unknown]
  - Rash [Unknown]
  - Anal pruritus [Unknown]
  - Pruritus [Unknown]
